FAERS Safety Report 23571605 (Version 1)
Quarter: 2024Q1

REPORT INFORMATION
  Report Type: Spontaneous
  Country: JP (occurrence: JP)
  Receive Date: 20240227
  Receipt Date: 20240227
  Transmission Date: 20240410
  Serious: Yes (Hospitalization)
  Sender: FDA-Public Use
  Company Number: JP-BEXIMCO-2024BEX00019

PATIENT
  Age: 16 Year
  Sex: Male

DRUGS (15)
  1. CARVEDILOL [Suspect]
     Active Substance: CARVEDILOL
     Dosage: 0.625 MG, 1X/DAY
  2. CARVEDILOL [Suspect]
     Active Substance: CARVEDILOL
     Dosage: 1.25 MG, 1X/DAY
  3. CARVEDILOL [Suspect]
     Active Substance: CARVEDILOL
     Dosage: 0.625 MG, 1X/DAY (2ND ATTEMPT)
  4. CARVEDILOL [Suspect]
     Active Substance: CARVEDILOL
     Dosage: 1.25 MG, 1X/DAY (2ND ATTEMPT)
  5. CARVEDILOL [Suspect]
     Active Substance: CARVEDILOL
     Dosage: DAY 12; REINTRODUCED (3RD ATTEMPT) AT UNKNOWN DOSE
  6. CARVEDILOL [Suspect]
     Active Substance: CARVEDILOL
     Dosage: DAY 14; 1.25 MG, 1X/DAY (3RD ATTEMPT)
  7. CARVEDILOL [Suspect]
     Active Substance: CARVEDILOL
     Dosage: DAY 69: 5 MG, 1X/DAY (GRADUALLY TITRATED TO THIS DOSE)
  8. CARVEDILOL [Suspect]
     Active Substance: CARVEDILOL
     Dosage: 20 MG, 1X/DAY (FOUR MONTHS LATER)
  9. ENALAPRIL [Concomitant]
     Active Substance: ENALAPRIL
     Indication: Dilated cardiomyopathy
     Dosage: INITIAL DOSING UNKNOWN
  10. ENALAPRIL [Concomitant]
     Active Substance: ENALAPRIL
     Dosage: 2.5 MG, 1X/DAY (DISCHARGE)
  11. SPIRONOLACTONE [Concomitant]
     Active Substance: SPIRONOLACTONE
     Indication: Dilated cardiomyopathy
     Dosage: INITIAL DOSING UNKNOWN
  12. SPIRONOLACTONE [Concomitant]
     Active Substance: SPIRONOLACTONE
     Dosage: 25 MG, 1X/DAY (DISCHARGE)
  13. AZOSEMIDE [Concomitant]
     Active Substance: AZOSEMIDE
     Indication: Dilated cardiomyopathy
  14. DOBUTAMINE [Concomitant]
     Active Substance: DOBUTAMINE HYDROCHLORIDE
     Indication: Dilated cardiomyopathy
     Dosage: 1 ?G/KG/MIN
     Route: 042
  15. MILRINONE [Concomitant]
     Active Substance: MILRINONE
     Indication: Dilated cardiomyopathy
     Dosage: 0.125 ?G/KG/MIN

REACTIONS (1)
  - Cardiogenic shock [Recovered/Resolved]
